FAERS Safety Report 15714558 (Version 2)
Quarter: 2019Q2

REPORT INFORMATION
  Report Type: Report from Study
  Country: JP (occurrence: JP)
  Receive Date: 20181212
  Receipt Date: 20190607
  Transmission Date: 20190711
  Serious: Yes (Other)
  Sender: FDA-Public Use
  Company Number: JP-GILEAD-2018-0379495

PATIENT
  Age: 48 Year
  Sex: Male

DRUGS (23)
  1. VENETLIN [Concomitant]
     Active Substance: ALBUTEROL SULFATE
     Indication: PROPHYLAXIS
     Route: 055
     Dates: start: 20160930, end: 20180208
  2. CANDESARTAN. [Concomitant]
     Active Substance: CANDESARTAN
     Route: 048
     Dates: start: 20171012
  3. MYDRIN-P [Concomitant]
     Active Substance: PHENYLEPHRINE HYDROCHLORIDE\TROPICAMIDE
     Indication: PROPHYLAXIS
     Route: 047
     Dates: start: 20171025
  4. LOCOID [Concomitant]
     Active Substance: HYDROCORTISONE BUTYRATE
     Route: 003
     Dates: start: 20171214
  5. TIMOLEATE [Concomitant]
     Indication: PROPHYLAXIS
     Route: 047
     Dates: start: 20171214, end: 20180207
  6. TRAMCET [Concomitant]
     Active Substance: ACETAMINOPHEN\TRAMADOL
     Route: 048
     Dates: start: 20170612, end: 20180308
  7. ESANBUTOL [Concomitant]
     Active Substance: ETHAMBUTOL HYDROCHLORIDE
     Route: 048
     Dates: start: 20160923, end: 20171010
  8. AZORGA [Concomitant]
     Active Substance: BRINZOLAMIDE\TIMOLOL MALEATE
     Indication: PROPHYLAXIS
     Route: 047
     Dates: start: 20180208, end: 20180509
  9. TRUSOPT [Concomitant]
     Active Substance: DORZOLAMIDE HYDROCHLORIDE
     Indication: PROPHYLAXIS
     Route: 047
     Dates: start: 20180510
  10. MICARDIS [Concomitant]
     Active Substance: TELMISARTAN
     Route: 048
     Dates: start: 20161014, end: 20171011
  11. OLOPATADINE HYDROCHLORIDE. [Concomitant]
     Active Substance: OLOPATADINE HYDROCHLORIDE
     Route: 048
     Dates: start: 20170116, end: 20180112
  12. HEPARINOID [Concomitant]
     Active Substance: CHONDROITIN SULFATE (BOVINE)
     Route: 003
     Dates: start: 20170911
  13. MYCOBUTIN [Concomitant]
     Active Substance: RIFABUTIN
     Indication: PROPHYLAXIS
     Route: 048
     Dates: start: 20160923
  14. TIMOLEATE [Concomitant]
     Route: 047
     Dates: start: 20180510
  15. EMTRICITABINE/TENOFOVIR ALAFENAMIDE [Suspect]
     Active Substance: EMTRICITABINE\TENOFOVIR
     Indication: HIV INFECTION
     Dosage: 1 DF, QD
     Route: 048
     Dates: start: 20170515
  16. CLARITHROMYCIN. [Concomitant]
     Active Substance: CLARITHROMYCIN
     Indication: OPPORTUNISTIC INFECTION PROPHYLAXIS
     Route: 048
     Dates: start: 20160923, end: 20171010
  17. ISENTRESS [Concomitant]
     Active Substance: RALTEGRAVIR POTASSIUM
     Indication: HIV INFECTION
     Route: 048
     Dates: start: 20161018
  18. AMLODIPINE [Concomitant]
     Active Substance: AMLODIPINE BESYLATE
     Route: 048
     Dates: start: 20170612
  19. LANSOPRAZOLE OD [Concomitant]
     Active Substance: LANSOPRAZOLE
     Indication: PROPHYLAXIS
     Route: 048
     Dates: start: 20160828
  20. ESANBUTOL [Concomitant]
     Active Substance: ETHAMBUTOL HYDROCHLORIDE
     Indication: PROPHYLAXIS
     Route: 048
     Dates: start: 20160923
  21. BENAMBAX [Concomitant]
     Active Substance: PENTAMIDINE
     Indication: PROPHYLAXIS
     Route: 065
     Dates: start: 20160930, end: 20180208
  22. CELESTAMINE F [Concomitant]
     Route: 048
     Dates: start: 20170116, end: 20171115
  23. RINDERON VG [Concomitant]
     Active Substance: BETAMETHASONE VALERATE\GENTAMICIN SULFATE
     Route: 003
     Dates: start: 20171012, end: 20180208

REACTIONS (2)
  - Uveitis [Recovering/Resolving]
  - CD8 lymphocytes increased [Not Recovered/Not Resolved]

NARRATIVE: CASE EVENT DATE: 20170911
